FAERS Safety Report 8037732-2 (Version None)
Quarter: 2012Q1

REPORT INFORMATION
  Report Type: 
  Country: None (occurrence: None)
  Receive Date: 20120111
  Receipt Date: 20120102
  Transmission Date: 20120608
  Serious: Yes (Death)
  Sender: FDA-Public Use
  Company Number: US-BAYER-2012-002058

PATIENT
  Age: 62 Year
  Sex: Female

DRUGS (6)
  1. IMIPRAMINE [Suspect]
     Dosage: UNK
     Route: 048
  2. BUPROPION HYDROCHLORIDE [Suspect]
     Dosage: UNK
     Route: 048
  3. DIPHENHYDRAMINE HCL [Suspect]
     Dosage: UNK
     Route: 048
  4. TRAZODONE HCL [Suspect]
     Dosage: UNK
     Route: 048
  5. LAXATIVE [Suspect]
     Dosage: UNK
     Route: 048
  6. MUSCLE RELAXANTS [Suspect]
     Dosage: UNK
     Route: 048

REACTIONS (1)
  - TOXICITY TO VARIOUS AGENTS [None]
